FAERS Safety Report 16393234 (Version 3)
Quarter: 2019Q3

REPORT INFORMATION
  Report Type: Spontaneous
  Country: CZ (occurrence: CZ)
  Receive Date: 20190605
  Receipt Date: 20190715
  Transmission Date: 20191004
  Serious: Yes (Hospitalization, Other)
  Sender: FDA-Public Use
  Company Number: PHHY2019CZ124815

PATIENT
  Age: 4 Year
  Sex: Male
  Weight: 29 kg

DRUGS (7)
  1. HUMIRA [Suspect]
     Active Substance: ADALIMUMAB
     Indication: JUVENILE IDIOPATHIC ARTHRITIS
     Dosage: 24 MG/M2, Q2W
     Route: 058
     Dates: start: 201611
  2. HUMIRA [Suspect]
     Active Substance: ADALIMUMAB
     Indication: IRIDOCYCLITIS
     Dosage: 20 MG, QW
     Route: 065
     Dates: start: 201611
  3. FOLIC ACID. [Concomitant]
     Active Substance: FOLIC ACID
     Indication: DRUG THERAPY
     Dosage: 10 MG, QW
     Route: 048
     Dates: start: 201608
  4. HUMIRA [Suspect]
     Active Substance: ADALIMUMAB
     Dosage: 20 MG, Q2W
     Route: 058
     Dates: start: 20180201
  5. HUMIRA [Suspect]
     Active Substance: ADALIMUMAB
     Dosage: 20 MG, QW
     Route: 058
     Dates: start: 20190324, end: 20190421
  6. METHOTREXATE. [Suspect]
     Active Substance: METHOTREXATE
     Dosage: 10 MG, QW
     Route: 058
     Dates: start: 201808, end: 20190419
  7. METHOTREXATE. [Suspect]
     Active Substance: METHOTREXATE
     Indication: IRIDOCYCLITIS
     Dosage: 7.5 MG, QW
     Route: 058
     Dates: start: 20160801

REACTIONS (12)
  - Monoparesis [Recovered/Resolved]
  - Immunosuppression [Recovering/Resolving]
  - Uveitis [Unknown]
  - Dysarthria [Recovered/Resolved]
  - Facial paralysis [Recovered/Resolved]
  - Central nervous system lesion [Recovering/Resolving]
  - Somnolence [Recovered/Resolved]
  - Demyelination [Recovering/Resolving]
  - Inflammation [Not Recovered/Not Resolved]
  - Motor dysfunction [Recovered/Resolved]
  - Agitation [Recovered/Resolved]
  - Epstein-Barr virus infection [Recovering/Resolving]

NARRATIVE: CASE EVENT DATE: 20190402
